FAERS Safety Report 18303073 (Version 1)
Quarter: 2020Q3

REPORT INFORMATION
  Report Type: Spontaneous
  Country: GB (occurrence: GB)
  Receive Date: 20200924
  Receipt Date: 20200924
  Transmission Date: 20201103
  Serious: Yes (Hospitalization)
  Sender: FDA-Public Use
  Company Number: GB-AUROBINDO-AUR-APL-2020-049091

PATIENT
  Age: 55 Year
  Sex: Male

DRUGS (10)
  1. VORTIOXETINE. [Concomitant]
     Active Substance: VORTIOXETINE
     Dosage: 20 MILLIGRAM (IN THE MORNING)
     Route: 048
  2. CITALOPRAM [Concomitant]
     Active Substance: CITALOPRAM HYDROBROMIDE
     Dosage: 40 MILLIGRAM (DOSE TITRATED TO 40 MG)
     Route: 065
  3. MODAFINIL. [Suspect]
     Active Substance: MODAFINIL
     Indication: DEPRESSION
     Dosage: UNK
     Route: 065
  4. MIRTAZAPINE. [Concomitant]
     Active Substance: MIRTAZAPINE
     Indication: DEPRESSION
     Dosage: UNK
     Route: 065
  5. VORTIOXETINE. [Concomitant]
     Active Substance: VORTIOXETINE
     Dosage: 10 MILLIGRAM (IN THE MORNING)
     Route: 048
  6. VORTIOXETINE. [Concomitant]
     Active Substance: VORTIOXETINE
     Dosage: 15 MILLIGRAM (IN THE MORNING)
     Route: 048
  7. LEVOTHYROXINE. [Concomitant]
     Active Substance: LEVOTHYROXINE
     Indication: THYROID DISORDER
     Dosage: 50 MICROGRAM
     Route: 065
  8. CITALOPRAM [Concomitant]
     Active Substance: CITALOPRAM HYDROBROMIDE
     Indication: DEPRESSION
     Dosage: UNK (INITIAL DOSE NOT STATED)
     Route: 065
  9. ROSUVASTATIN. [Concomitant]
     Active Substance: ROSUVASTATIN
     Indication: BLOOD CHOLESTEROL INCREASED
     Dosage: 10 MILLIGRAM
     Route: 065
  10. VORTIOXETINE. [Concomitant]
     Active Substance: VORTIOXETINE
     Indication: DEPRESSION
     Dosage: 5 MILLIGRAM (IN THE MORNING)
     Route: 048

REACTIONS (2)
  - Treatment failure [Unknown]
  - Confusional state [Unknown]
